FAERS Safety Report 15113733 (Version 2)
Quarter: 2018Q3

REPORT INFORMATION
  Report Type: Spontaneous
  Country: US (occurrence: US)
  Receive Date: 20180706
  Receipt Date: 20180920
  Transmission Date: 20181010
  Serious: No
  Sender: FDA-Public Use
  Company Number: US-PFIZER INC-2018268847

PATIENT
  Sex: Male
  Weight: 79.37 kg

DRUGS (1)
  1. FENTANYL CITRATE. [Suspect]
     Active Substance: FENTANYL CITRATE
     Indication: PAIN
     Dosage: 150 MG, UNK (PATCH EVERY 2 DAYS)
     Route: 062

REACTIONS (1)
  - Drug ineffective [Unknown]
